FAERS Safety Report 7724256-2 (Version None)
Quarter: 2011Q3

REPORT INFORMATION
  Report Type: 
  Country: None (occurrence: None)
  Receive Date: 20110901
  Receipt Date: 20110823
  Transmission Date: 20111222
  Serious: Yes (Other)
  Sender: FDA-Public Use
  Company Number: US-ASTRAZENECA-2011SE46261

PATIENT
  Age: 931 Month
  Sex: Female
  Weight: 65.5 kg

DRUGS (2)
  1. VANDETANIB [Suspect]
     Indication: MALIGNANT PERITONEAL NEOPLASM
     Route: 048
     Dates: start: 20110302, end: 20110726
  2. DOCETAXEL [Suspect]
     Indication: MALIGNANT PERITONEAL NEOPLASM
     Route: 042
     Dates: start: 20110302

REACTIONS (5)
  - NEUTROPHIL COUNT DECREASED [None]
  - FATIGUE [None]
  - LYMPHOCYTE COUNT DECREASED [None]
  - WHITE BLOOD CELL COUNT DECREASED [None]
  - PYREXIA [None]
